FAERS Safety Report 6117493-4 (Version None)
Quarter: 2009Q1

REPORT INFORMATION
  Report Type: 
  Country: None (occurrence: None)
  Receive Date: 20090314
  Receipt Date: 20090202
  Transmission Date: 20090719
  Serious: Yes (Other)
  Sender: FDA-Public Use
  Company Number: US-ABBOTT-09P-163-0498708-00

PATIENT
  Sex: Male
  Weight: 118.04 kg

DRUGS (4)
  1. HUMIRA [Suspect]
     Indication: PSORIATIC ARTHROPATHY
     Dates: start: 20050101
  2. METHOTREXATE [Concomitant]
     Indication: PSORIATIC ARTHROPATHY
  3. NORVASC [Concomitant]
     Indication: HYPERTENSION
     Dates: start: 20010101
  4. LASIX [Concomitant]
     Indication: HEART RATE INCREASED
     Route: 048
     Dates: start: 20080801

REACTIONS (3)
  - ARRHYTHMIA [None]
  - HEART RATE INCREASED [None]
  - PSORIASIS [None]
